FAERS Safety Report 9662986 (Version 2)
Quarter: 2013Q4

REPORT INFORMATION
  Report Type: Spontaneous
  Country: US (occurrence: US)
  Receive Date: 20131031
  Receipt Date: 20131031
  Transmission Date: 20140711
  Serious: No
  Sender: FDA-Public Use
  Company Number: US-PURDUE-USA-2011-0065619

PATIENT
  Age: 35 Year
  Sex: Female

DRUGS (2)
  1. OXYCONTIN (NDA 22-272) [Suspect]
     Indication: PAIN
     Dosage: UNK UNK, SEE TEXT
     Route: 048
     Dates: start: 20110302
  2. PLAQUENIL                          /00072602/ [Concomitant]
     Indication: SARCOIDOSIS
     Dosage: 200 MG, DAILY

REACTIONS (6)
  - Influenza [Unknown]
  - Pain [Not Recovered/Not Resolved]
  - Exposure during pregnancy [Unknown]
  - Headache [Not Recovered/Not Resolved]
  - Unevaluable event [Unknown]
  - Drug effect decreased [Unknown]
